FAERS Safety Report 17811710 (Version 4)
Quarter: 2020Q3

REPORT INFORMATION
  Report Type: Spontaneous
  Country: US (occurrence: US)
  Receive Date: 20200521
  Receipt Date: 20200709
  Transmission Date: 20201102
  Serious: Yes (Other)
  Sender: FDA-Public Use
  Company Number: US-PFIZER INC-2020201245

PATIENT
  Age: 31 Year
  Sex: Female

DRUGS (1)
  1. METHOTREXATE SODIUM. [Suspect]
     Active Substance: METHOTREXATE SODIUM
     Indication: PSORIATIC ARTHROPATHY
     Dosage: 10 MG, WEEKLY
     Route: 048
     Dates: start: 2015, end: 2015

REACTIONS (4)
  - Liver disorder [Unknown]
  - Abdominal discomfort [Unknown]
  - Vomiting [Unknown]
  - Therapeutic product effect incomplete [Unknown]
